FAERS Safety Report 22279191 (Version 2)
Quarter: 2023Q2

REPORT INFORMATION
  Report Type: Spontaneous
  Country: US (occurrence: US)
  Receive Date: 20230503
  Receipt Date: 20230617
  Transmission Date: 20230722
  Serious: No
  Sender: FDA-Public Use
  Company Number: US-AMGEN-USASP2023075069

PATIENT
  Age: 55 Year
  Sex: Female
  Weight: 79.819 kg

DRUGS (4)
  1. PROLIA [Suspect]
     Active Substance: DENOSUMAB
     Indication: Osteoporosis
     Dosage: 60 MILLIGRAM, UNK
     Route: 065
  2. PROLIA [Suspect]
     Active Substance: DENOSUMAB
     Indication: Osteoporosis postmenopausal
  3. CALCIUM [Concomitant]
     Active Substance: CALCIUM
  4. VITAMIN D [Concomitant]
     Active Substance: VITAMIN D NOS

REACTIONS (17)
  - Pruritus [Unknown]
  - Dry skin [Unknown]
  - Urticaria [Unknown]
  - Fatigue [Recovering/Resolving]
  - Depression [Unknown]
  - Arthralgia [Unknown]
  - Pollakiuria [Unknown]
  - Abdominal distension [Recovered/Resolved]
  - Weight increased [Unknown]
  - Dyspnoea [Unknown]
  - Fluid retention [Unknown]
  - Skin discolouration [Unknown]
  - Gastrointestinal motility disorder [Recovering/Resolving]
  - Pain [Recovering/Resolving]
  - Anxiety [Unknown]
  - Hypersensitivity [Recovered/Resolved]
  - Blood pressure systolic increased [Unknown]
